FAERS Safety Report 4521265-1 (Version None)
Quarter: 2004Q4

REPORT INFORMATION
  Report Type: 
  Country: None (occurrence: None)
  Receive Date: 20041208
  Receipt Date: 20041119
  Transmission Date: 20050328
  Serious: Yes (Death)
  Sender: FDA-Public Use
  Company Number: JPKYO-S-20040045

PATIENT
  Age: 71 Year
  Sex: Male

DRUGS (14)
  1. NAVELBINE [Suspect]
     Indication: LUNG ADENOCARCINOMA
     Dosage: 25MGM2 CYCLIC
     Route: 042
     Dates: start: 20041026, end: 20041102
  2. CISPLATIN [Suspect]
     Indication: LUNG ADENOCARCINOMA
     Route: 042
     Dates: start: 20041026
  3. DECADRON [Concomitant]
  4. PRIMPERAN INJ [Concomitant]
  5. SEROTONE [Concomitant]
  6. VOLTAREN [Concomitant]
  7. PERDIPINE [Concomitant]
  8. ENALAPRIL MALEATE [Concomitant]
  9. MUCODYNE [Concomitant]
  10. GASTER D [Concomitant]
  11. VOLTAREN [Concomitant]
  12. MUCOSTA [Concomitant]
  13. HOKUNALIN [Concomitant]
  14. FLUTICASONE PROPIONATE [Concomitant]

REACTIONS (4)
  - BLOOD PRESSURE DECREASED [None]
  - FEBRILE NEUTROPENIA [None]
  - SEPTIC SHOCK [None]
  - URINE OUTPUT DECREASED [None]
